FAERS Safety Report 16928112 (Version 1)
Quarter: 2019Q4

REPORT INFORMATION
  Report Type: Spontaneous
  Country: MY (occurrence: MY)
  Receive Date: 20191017
  Receipt Date: 20191017
  Transmission Date: 20200122
  Serious: Yes (Other)
  Sender: FDA-Public Use
  Company Number: MY-TEVA-2019-MY-1121911

PATIENT
  Age: 32 Year
  Sex: Female

DRUGS (2)
  1. METOCLOPRAMIDE. [Suspect]
     Active Substance: METOCLOPRAMIDE
     Indication: MORNING SICKNESS
     Dosage: THREE TIMES DAILY
     Route: 048
  2. METOCLOPRAMIDE. [Suspect]
     Active Substance: METOCLOPRAMIDE
     Indication: MORNING SICKNESS
     Dosage: ONCE DAILY AT LOWER DOSAGE
     Route: 048

REACTIONS (4)
  - Opisthotonus [Recovering/Resolving]
  - Gaze palsy [Recovering/Resolving]
  - Dystonia [Recovering/Resolving]
  - Maternal exposure during pregnancy [Unknown]
